FAERS Safety Report 6044835-0 (Version None)
Quarter: 2009Q1

REPORT INFORMATION
  Report Type: 
  Country: None (occurrence: None)
  Receive Date: 20090121
  Receipt Date: 20090113
  Transmission Date: 20090719
  Serious: Yes (Hospitalization)
  Sender: FDA-Public Use
  Company Number: DE-RANBAXY-2009RR-20553

PATIENT
  Age: 67 Year
  Sex: Female

DRUGS (3)
  1. FUROSEMIDE [Suspect]
     Indication: OEDEMA
     Dosage: 40 MG, QD
     Route: 048
     Dates: end: 20081008
  2. MADOPAR [Suspect]
     Indication: PARKINSON'S DISEASE
     Route: 048
  3. SPIRONOLACTONE [Concomitant]
     Indication: OEDEMA
     Dosage: 25 MG, QD
     Route: 048

REACTIONS (1)
  - PRESYNCOPE [None]
